FAERS Safety Report 16284052 (Version 1)
Quarter: 2019Q2

REPORT INFORMATION
  Report Type: Spontaneous
  Country: HR (occurrence: HR)
  Receive Date: 20190507
  Receipt Date: 20190507
  Transmission Date: 20190711
  Serious: Yes (Other)
  Sender: FDA-Public Use
  Company Number: PHHY2019HR100840

PATIENT
  Age: 61 Year
  Sex: Male

DRUGS (2)
  1. KETOPROFEN. [Suspect]
     Active Substance: KETOPROFEN
     Indication: PAIN
     Dosage: UNK
     Route: 065
  2. IBUPROFEN. [Suspect]
     Active Substance: IBUPROFEN
     Indication: PAIN
     Dosage: UNK
     Route: 065

REACTIONS (11)
  - Gastric ulcer haemorrhage [Unknown]
  - Melaena [Unknown]
  - Blood bilirubin increased [Unknown]
  - Duodenitis [Unknown]
  - Blood creatinine increased [Unknown]
  - Blood urea increased [Unknown]
  - Haematochezia [Unknown]
  - Plasma viscosity decreased [Unknown]
  - Haemorrhoids [Unknown]
  - Abdominal pain upper [Unknown]
  - Blood loss anaemia [Unknown]
